FAERS Safety Report 23239230 (Version 4)
Quarter: 2024Q3

REPORT INFORMATION
  Report Type: Report from Study
  Country: DE (occurrence: DE)
  Receive Date: 20231129
  Receipt Date: 20240704
  Transmission Date: 20241017
  Serious: Yes (Hospitalization, Other)
  Sender: ABBVIE
  Company Number: DE-ABBVIE-5517777

PATIENT
  Age: 79 Year
  Sex: Female

DRUGS (2)
  1. CARBIDOPA\LEVODOPA [Suspect]
     Active Substance: CARBIDOPA\LEVODOPA
     Indication: Parkinson^s disease
     Dosage: MD: 6.5ML; CRD: 4.0ML/H; ED: 1.5M
     Route: 050
     Dates: start: 20210324
  2. CARBIDOPA\LEVODOPA [Suspect]
     Active Substance: CARBIDOPA\LEVODOPA
     Route: 050

REACTIONS (6)
  - Duodenal perforation [Recovered/Resolved]
  - Gastrointestinal inflammation [Recovering/Resolving]
  - Duodenal rupture [Unknown]
  - Sepsis [Recovered/Resolved]
  - Duodenal perforation [Unknown]
  - Cognitive disorder [Not Recovered/Not Resolved]

NARRATIVE: CASE EVENT DATE: 20231101
